FAERS Safety Report 9209525 (Version 1)
Quarter: 2013Q1

REPORT INFORMATION
  Report Type: Spontaneous
  Country: US (occurrence: None)
  Receive Date: 20120820
  Receipt Date: 20120820
  Transmission Date: 20140127
  Serious: No
  Sender: FDA-Public Use
  Company Number: 1000030375

PATIENT
  Age: 41 Year
  Sex: Male

DRUGS (7)
  1. VIIBRYD [Suspect]
     Indication: DEPRESSION
     Dosage: 10 MG 1 IN 1 D
     Route: 048
     Dates: start: 20120322, end: 20120328
  2. VIIBRYD (VILAZODONE) (40 MILLIGRAM , TABLETS) [Suspect]
     Indication: DEPRESSION
     Route: 048
     Dates: start: 20120405, end: 201204
  3. MULTIVITAMINS (MULTIVITAMINS) (MULTIVITAMINS) [Concomitant]
  4. MELATONIN (MELATONIN) (MELATONIN) [Concomitant]
  5. PRILOSEC (OMEPRAZOLE) (OMEPRAZOLE) [Concomitant]
  6. RANTIDINE (RANTIDINE) (RANTIDINE) [Concomitant]
  7. CLONAZEPAM [Concomitant]

REACTIONS (3)
  - Paraesthesia [None]
  - Hallucination [None]
  - Muscular weakness [None]
